FAERS Safety Report 7402842-7 (Version None)
Quarter: 2011Q2

REPORT INFORMATION
  Report Type: 
  Country: None (occurrence: None)
  Receive Date: 20110408
  Receipt Date: 20110315
  Transmission Date: 20111010
  Serious: No
  Sender: FDA-Public Use
  Company Number: US-B.I. PHARMACEUTICALS,INC./RIDGEFIELD-2011-BP-08184BP

PATIENT
  Age: 86 Year
  Sex: Female

DRUGS (10)
  1. PRADAXA [Suspect]
     Indication: ATRIAL FIBRILLATION
     Dosage: 300 MG
     Route: 048
     Dates: start: 20110201
  2. VITAMIN B-12 [Concomitant]
     Indication: SUPPLEMENTATION THERAPY
  3. CALCIUM [Concomitant]
     Indication: SUPPLEMENTATION THERAPY
  4. VITAMIN E [Concomitant]
     Indication: SUPPLEMENTATION THERAPY
  5. RANITIDINE HCL [Concomitant]
     Indication: GASTRIC DISORDER
  6. SPIRONOLACTONE [Concomitant]
     Indication: DIURETIC THERAPY
  7. DILTIAZEM [Concomitant]
     Indication: HYPERTENSION
  8. FOLIC ACID [Concomitant]
     Indication: SUPPLEMENTATION THERAPY
  9. FINASTERIDE [Concomitant]
     Indication: PROSTATOMEGALY
  10. FISH OIL [Concomitant]
     Indication: SUPPLEMENTATION THERAPY

REACTIONS (1)
  - CONSTIPATION [None]
